FAERS Safety Report 25002331 (Version 1)
Quarter: 2025Q1

REPORT INFORMATION
  Report Type: Other
  Country: US (occurrence: US)
  Receive Date: 20250224
  Receipt Date: 20250224
  Transmission Date: 20250409
  Serious: Yes (Other)
  Sender: BIONPHARMA INC.
  Company Number: US-Bion-014729

PATIENT

DRUGS (1)
  1. NAPROXEN SODIUM [Suspect]
     Active Substance: NAPROXEN SODIUM
     Indication: Analgesic intervention supportive therapy

REACTIONS (1)
  - Drug-induced liver injury [Unknown]
